FAERS Safety Report 13404580 (Version 4)
Quarter: 2017Q3

REPORT INFORMATION
  Report Type: Spontaneous
  Country: US (occurrence: US)
  Receive Date: 20170405
  Receipt Date: 20170819
  Transmission Date: 20171127
  Serious: No
  Sender: FDA-Public Use
  Company Number: PHEH2017US009885

PATIENT
  Sex: Female
  Weight: 65.76 kg

DRUGS (3)
  1. ZOFRAN [Suspect]
     Active Substance: ONDANSETRON HYDROCHLORIDE
     Indication: PRODUCT USED FOR UNKNOWN INDICATION
     Route: 048
  2. ONDANSETRONE DR. REDDY^S [Suspect]
     Active Substance: ONDANSETRON HYDROCHLORIDE
     Indication: VOMITING IN PREGNANCY
     Dosage: 04 MG, QD
     Route: 065
     Dates: start: 20071222, end: 200801
  3. ONDANSETRONE DR. REDDY^S [Suspect]
     Active Substance: ONDANSETRON HYDROCHLORIDE
     Dosage: 08 MG, QD
     Route: 065
     Dates: start: 20080106, end: 20080115

REACTIONS (5)
  - Emotional distress [Unknown]
  - Constipation [Unknown]
  - Injury [Unknown]
  - Product use issue [Unknown]
  - Maternal exposure during pregnancy [Unknown]
